FAERS Safety Report 19971839 (Version 1)
Quarter: 2021Q4

REPORT INFORMATION
  Report Type: Report from Study
  Country: CA (occurrence: CA)
  Receive Date: 20211020
  Receipt Date: 20211020
  Transmission Date: 20220303
  Serious: Yes (Other)
  Sender: FDA-Public Use
  Company Number: CA-JNJFOC-20211028901

PATIENT
  Age: 12 Year
  Sex: Male
  Weight: 87.7 kg

DRUGS (1)
  1. REMICADE [Suspect]
     Active Substance: INFLIXIMAB
     Indication: Crohn^s disease
     Route: 042
     Dates: start: 20210503

REACTIONS (6)
  - Rectal haemorrhage [Recovered/Resolved]
  - Feeling abnormal [Not Recovered/Not Resolved]
  - Frequent bowel movements [Not Recovered/Not Resolved]
  - Abdominal pain [Not Recovered/Not Resolved]
  - Diarrhoea [Not Recovered/Not Resolved]
  - Therapeutic product effect decreased [Unknown]

NARRATIVE: CASE EVENT DATE: 20210101
